FAERS Safety Report 8202820-4 (Version None)
Quarter: 2012Q1

REPORT INFORMATION
  Report Type: 
  Country: None (occurrence: None)
  Receive Date: 20120312
  Receipt Date: 20120312
  Transmission Date: 20120608
  Serious: Yes (Hospitalization)
  Sender: FDA-Public Use
  Company Number: None

PATIENT
  Age: 66 Year
  Sex: Male
  Weight: 85 kg

DRUGS (3)
  1. BRILINTA [Concomitant]
     Dosage: 90 MG
     Route: 048
     Dates: start: 20120126, end: 20120210
  2. BRILINTA [Suspect]
     Indication: ACUTE MYOCARDIAL INFARCTION
     Dosage: 90 MG
     Route: 048
     Dates: start: 20120126, end: 20120210
  3. BRILINTA [Suspect]
     Indication: STENT PLACEMENT
     Dosage: 90 MG
     Route: 048
     Dates: start: 20120126, end: 20120210

REACTIONS (3)
  - EPISTAXIS [None]
  - DYSPNOEA [None]
  - PLATELET COUNT DECREASED [None]
